FAERS Safety Report 4615187-5 (Version None)
Quarter: 2005Q1

REPORT INFORMATION
  Report Type: 
  Country: None (occurrence: None)
  Receive Date: 20050317
  Receipt Date: 20050301
  Transmission Date: 20050727
  Serious: Yes (Disabling)
  Sender: FDA-Public Use
  Company Number: DSA_60473_2005

PATIENT
  Age: 9 Year
  Sex: Female
  Weight: 29.0302 kg

DRUGS (6)
  1. MIGRANAL [Suspect]
     Indication: MIGRAINE
     Dosage: 1 DF ONCE IN
     Route: 045
     Dates: start: 20050208, end: 20050208
  2. TYLENOL W/ CODEINE [Concomitant]
  3. CHILDREN'S MOTRIN [Concomitant]
  4. PROMETHAZINE [Concomitant]
  5. BUTALBITAL COMPOUND [Concomitant]
  6. CYPROHEPTADINE HCL [Concomitant]

REACTIONS (16)
  - ASTHENIA [None]
  - BRAIN OEDEMA [None]
  - BURNING SENSATION [None]
  - CEREBRAL DISORDER [None]
  - CHEST PAIN [None]
  - FALL [None]
  - MONOPARESIS [None]
  - NERVE INJURY [None]
  - NERVOUS SYSTEM DISORDER [None]
  - PAIN IN EXTREMITY [None]
  - PARAESTHESIA [None]
  - PERIPHERAL COLDNESS [None]
  - RETCHING [None]
  - SCREAMING [None]
  - SKIN DISCOLOURATION [None]
  - UNEVALUABLE EVENT [None]
